FAERS Safety Report 9645549 (Version 4)
Quarter: 2014Q2

REPORT INFORMATION
  Report Type: Spontaneous
  Country: US (occurrence: None)
  Receive Date: 20131023
  Receipt Date: 20140606
  Transmission Date: 20141212
  Serious: Yes (Other)
  Sender: FDA-Public Use
  Company Number: 1900989

PATIENT
  Sex: Female

DRUGS (2)
  1. SODIUM CHLORIDE [Suspect]
     Indication: PRODUCT USED FOR UNKNOWN INDICATION
     Dosage: INJECT INTO THE TISSUE EXPANDER (1 WEEK)
     Route: 050
     Dates: start: 201302, end: 2013
  2. POVIDONE IODINE [Concomitant]

REACTIONS (16)
  - Multiple injuries [None]
  - Serratia infection [None]
  - Dyspnoea [None]
  - Dysphagia [None]
  - Injection site swelling [None]
  - Axillary pain [None]
  - Musculoskeletal pain [None]
  - Pain in extremity [None]
  - Procedural site reaction [None]
  - Erythema [None]
  - Device related infection [None]
  - Wrong technique in drug usage process [None]
  - Incorrect product storage [None]
  - Product contamination [None]
  - Injury [None]
  - Product contamination microbial [None]
